FAERS Safety Report 20889548 (Version 2)
Quarter: 2022Q2

REPORT INFORMATION
  Report Type: Report from Study
  Country: US (occurrence: US)
  Receive Date: 20220530
  Receipt Date: 20220602
  Transmission Date: 20220721
  Serious: Yes (Death)
  Sender: FDA-Public Use
  Company Number: US-ABBVIE-22K-163-4414834-00

PATIENT
  Sex: Male
  Weight: 67.646 kg

DRUGS (2)
  1. HUMIRA [Suspect]
     Active Substance: ADALIMUMAB
     Indication: Rheumatoid arthritis
     Dosage: CITRATE FREE
     Route: 058
     Dates: start: 20190723, end: 20211123
  2. DECADRON [Concomitant]
     Active Substance: DEXAMETHASONE
     Indication: Wheezing

REACTIONS (1)
  - Lung neoplasm malignant [Fatal]
